FAERS Safety Report 13647078 (Version 1)
Quarter: 2017Q2

REPORT INFORMATION
  Report Type: Spontaneous
  Country: US (occurrence: US)
  Receive Date: 20170613
  Receipt Date: 20170613
  Transmission Date: 20170830
  Serious: Yes (Other)
  Sender: FDA-Public Use
  Company Number: None

PATIENT
  Age: 58 Year
  Sex: Female
  Weight: 81 kg

DRUGS (15)
  1. ALLEGRA [Concomitant]
     Active Substance: FEXOFENADINE HYDROCHLORIDE
  2. MELATONIN [Concomitant]
     Active Substance: MELATONIN
  3. DOCUSATE [Concomitant]
     Active Substance: DOCUSATE
  4. BACLOFEN. [Concomitant]
     Active Substance: BACLOFEN
  5. VITAMIN D [Concomitant]
     Active Substance: CHOLECALCIFEROL
  6. BOTOX [Suspect]
     Active Substance: ONABOTULINUMTOXINA
     Indication: POST CONCUSSION SYNDROME
     Dosage: ?          OTHER ROUTE:INJECTIONS BY DOCTOR?
     Dates: start: 20150201, end: 20150201
  7. VITAMIN B12 [Concomitant]
     Active Substance: CYANOCOBALAMIN
  8. ATENOLOL. [Concomitant]
     Active Substance: ATENOLOL
  9. PROMETHAZINE [Concomitant]
     Active Substance: PROMETHAZINE\PROMETHAZINE HYDROCHLORIDE
  10. VITAMIN C [Concomitant]
     Active Substance: ASCORBIC ACID
  11. VESICARE [Concomitant]
     Active Substance: SOLIFENACIN SUCCINATE
  12. VICODIN [Concomitant]
     Active Substance: ACETAMINOPHEN\HYDROCODONE BITARTRATE
  13. FERROUS SULFATE. [Concomitant]
     Active Substance: FERROUS SULFATE
  14. CELEBREX [Concomitant]
     Active Substance: CELECOXIB
  15. NEURONTIN [Concomitant]
     Active Substance: GABAPENTIN

REACTIONS (1)
  - Neck pain [None]

NARRATIVE: CASE EVENT DATE: 20150201
